FAERS Safety Report 8465836 (Version 2)
Quarter: 2014Q1

REPORT INFORMATION
  Report Type: Spontaneous
  Country: US (occurrence: None)
  Receive Date: 20120228
  Receipt Date: 20140304
  Transmission Date: 20141002
  Serious: Yes (Other)
  Sender: FDA-Public Use
  Company Number: RB-31089-2011

PATIENT
  Sex: Male

DRUGS (2)
  1. SUBUTEX [Suspect]
     Indication: DRUG DEPENDENCE
     Dosage: 24 MG TAPERED DOWN TO 2 MG
     Route: 064
     Dates: start: 201102, end: 201106
  2. NICOTINE (NONE) [Suspect]
     Indication: TOBACCO USER
     Route: 064
     Dates: end: 20110722

REACTIONS (3)
  - Caesarean section [None]
  - Drug withdrawal syndrome neonatal [None]
  - Maternal drugs affecting foetus [None]
